FAERS Safety Report 9030583 (Version 4)
Quarter: 2013Q2

REPORT INFORMATION
  Report Type: Spontaneous
  Country: IT (occurrence: IT)
  Receive Date: 20130123
  Receipt Date: 20130605
  Transmission Date: 20140414
  Serious: Yes (Other)
  Sender: FDA-Public Use
  Company Number: IT-ELI_LILLY_AND_COMPANY-IT201301007146

PATIENT
  Age: 51 Year
  Sex: Female
  Weight: 68 kg

DRUGS (5)
  1. ALIMTA [Suspect]
     Indication: LUNG ADENOCARCINOMA METASTATIC
     Dosage: 950 MG, UNK
     Route: 042
     Dates: start: 201206, end: 201212
  2. CISPLATIN [Concomitant]
     Indication: LUNG ADENOCARCINOMA METASTATIC
     Dosage: 75 MG, UNK
     Route: 042
     Dates: end: 201210
  3. LYRICA [Concomitant]
     Dosage: 75 MG, BID
  4. VITAMIN B12 [Concomitant]
  5. FOLIC ACID [Concomitant]

REACTIONS (2)
  - Malignant neoplasm progression [Unknown]
  - Neuropathy peripheral [Recovering/Resolving]
